FAERS Safety Report 20792251 (Version 2)
Quarter: 2022Q2

REPORT INFORMATION
  Report Type: Spontaneous
  Country: US (occurrence: None)
  Receive Date: 20220505
  Receipt Date: 20220609
  Transmission Date: 20220720
  Serious: No
  Sender: FDA-Public Use
  Company Number: 2022A143819

PATIENT
  Sex: Female
  Weight: 60.8 kg

DRUGS (1)
  1. SYMBICORT [Suspect]
     Active Substance: BUDESONIDE\FORMOTEROL FUMARATE DIHYDRATE
     Indication: Asthma
     Dosage: 160/4.5 MCG, 120 INHALATIONS, 2 INHALATIONS TWICE A DAY
     Route: 055

REACTIONS (12)
  - Wheezing [Unknown]
  - Cough [Unknown]
  - Hypersensitivity [Unknown]
  - Off label use [Unknown]
  - Incorrect dose administered by device [Unknown]
  - Device use issue [Unknown]
  - Product dose omission issue [Unknown]
  - Product dispensing error [Unknown]
  - Expired product administered [Unknown]
  - Product barcode issue [Unknown]
  - Device delivery system issue [Unknown]
  - Product packaging quantity issue [Unknown]
